FAERS Safety Report 18186547 (Version 1)
Quarter: 2020Q3

REPORT INFORMATION
  Report Type: Spontaneous
  Country: FR (occurrence: FR)
  Receive Date: 20200824
  Receipt Date: 20200824
  Transmission Date: 20201103
  Serious: Yes (Hospitalization)
  Sender: FDA-Public Use
  Company Number: FR-ACCORD-196856

PATIENT
  Age: 84 Year
  Sex: Male

DRUGS (10)
  1. PRADAXA [Concomitant]
     Active Substance: DABIGATRAN ETEXILATE MESYLATE
  2. CORDARONE [Concomitant]
     Active Substance: AMIODARONE HYDROCHLORIDE
  3. DIGOXIN. [Concomitant]
     Active Substance: DIGOXIN
  4. IMATINIB/IMATINIB MESILATE [Suspect]
     Active Substance: IMATINIB
     Indication: CHRONIC MYELOID LEUKAEMIA
     Route: 048
     Dates: start: 201908
  5. COVERSYL [Concomitant]
     Active Substance: PERINDOPRIL
  6. ACETYLSALICYLIC ACID [Concomitant]
     Active Substance: ASPIRIN
  7. STAGID [Concomitant]
     Active Substance: METFORMIN PAMOATE
  8. METHOTREXATE. [Suspect]
     Active Substance: METHOTREXATE
     Indication: RHEUMATOID ARTHRITIS
     Route: 048
     Dates: start: 200811
  9. BISOCE [Concomitant]
     Active Substance: BISOPROLOL
  10. BURINEX [Concomitant]
     Active Substance: BUMETANIDE

REACTIONS (1)
  - Transitional cell carcinoma [Not Recovered/Not Resolved]

NARRATIVE: CASE EVENT DATE: 2020
